FAERS Safety Report 8384751-2 (Version None)
Quarter: 2012Q2

REPORT INFORMATION
  Report Type: 
  Country: None (occurrence: None)
  Receive Date: 20120524
  Receipt Date: 20120510
  Transmission Date: 20120825
  Serious: Yes (Hospitalization, Other)
  Sender: FDA-Public Use
  Company Number: GR-ROCHE-1064111

PATIENT
  Sex: Male
  Weight: 50 kg

DRUGS (7)
  1. MABTHERA [Suspect]
     Dates: start: 20120430
  2. MABTHERA [Suspect]
     Dates: start: 20120507
  3. ACETAMINOPHEN [Concomitant]
     Indication: PREMEDICATION
  4. MEDROL [Concomitant]
     Dates: start: 20111219, end: 20111222
  5. MABTHERA [Suspect]
     Dates: start: 20120416
  6. MABTHERA [Suspect]
     Indication: SYSTEMIC LUPUS ERYTHEMATOSUS
     Dates: start: 20120409
  7. CHLORPHENAMIN [Concomitant]
     Indication: PREMEDICATION

REACTIONS (7)
  - CONJUNCTIVAL HYPERAEMIA [None]
  - HYPERSENSITIVITY [None]
  - PURPURA [None]
  - RASH PRURITIC [None]
  - PYREXIA [None]
  - ARTHRALGIA [None]
  - BONE SWELLING [None]
